FAERS Safety Report 9723762 (Version 3)
Quarter: 2014Q2

REPORT INFORMATION
  Report Type: Spontaneous
  Country: JP (occurrence: JP)
  Receive Date: 20131202
  Receipt Date: 20140401
  Transmission Date: 20141212
  Serious: Yes (Hospitalization, Other)
  Sender: FDA-Public Use
  Company Number: JP-TAKEDA-2013TUS002277

PATIENT
  Sex: 0

DRUGS (10)
  1. FEBURIC [Suspect]
     Indication: HYPERURICAEMIA
     Dosage: 10 MG, QD
     Route: 048
     Dates: start: 20131027, end: 20131106
  2. BAYASPIRIN [Concomitant]
     Indication: ANGINA PECTORIS
     Dosage: 100 MG, QD
     Route: 048
     Dates: start: 201212
  3. PLAVIX [Concomitant]
     Indication: CORONARY ANGIOPLASTY
     Dosage: 75 MG, QD
     Route: 048
     Dates: start: 201212
  4. LANSOPRAZOLE [Concomitant]
     Indication: GASTROINTESTINAL DISORDER POSTOPERATIVE
     Dosage: 15 MG, QD
     Route: 048
     Dates: start: 201212
  5. CRESTOR [Concomitant]
     Indication: HYPERLIPIDAEMIA
     Dosage: 2.5 MG, QD
     Route: 048
     Dates: start: 201212
  6. NORVASC [Concomitant]
     Indication: HYPERTENSION
     Dosage: 2.5 MG, QD
     Route: 048
     Dates: start: 20130517
  7. MYSLEE [Concomitant]
     Indication: INSOMNIA
     Dosage: 5 MG, QD
     Route: 048
     Dates: start: 20130111
  8. PURSENNID                          /00571902/ [Concomitant]
     Indication: CONSTIPATION
     Dosage: 24 MG, QD
     Route: 048
     Dates: start: 20130107
  9. MUCOSTA [Concomitant]
     Indication: GASTRITIS
     Dosage: 100 MG, QD
     Route: 048
  10. LOXOPROFEN                         /00890702/ [Concomitant]
     Indication: GOUT
     Dosage: 60 MG, QD
     Route: 048

REACTIONS (1)
  - Thrombocytopenic purpura [Recovering/Resolving]
